FAERS Safety Report 6196635-9 (Version None)
Quarter: 2009Q2

REPORT INFORMATION
  Report Type: 
  Country: None (occurrence: None)
  Receive Date: 20090520
  Receipt Date: 20090511
  Transmission Date: 20091009
  Serious: Yes (Life-Threatening, Hospitalization, Disabling)
  Sender: FDA-Public Use
  Company Number: A0763798A

PATIENT
  Age: 52 Year
  Sex: Female

DRUGS (4)
  1. ADVAIR HFA [Suspect]
     Indication: ASTHMA
     Route: 055
     Dates: start: 20080601
  2. TYLENOL [Concomitant]
  3. METFORMIN HCL [Concomitant]
  4. XANAX [Concomitant]

REACTIONS (9)
  - DIPLOPIA [None]
  - DISORIENTATION [None]
  - DYSPHONIA [None]
  - FATIGUE [None]
  - HEADACHE [None]
  - PRESYNCOPE [None]
  - SINUS HEADACHE [None]
  - SINUSITIS [None]
  - UNEVALUABLE EVENT [None]
